FAERS Safety Report 23544400 (Version 2)
Quarter: 2024Q1

REPORT INFORMATION
  Report Type: Spontaneous
  Country: GB (occurrence: GB)
  Receive Date: 20240220
  Receipt Date: 20240221
  Transmission Date: 20240410
  Serious: No
  Sender: FDA-Public Use
  Company Number: GB-PFIZER INC-PV202400014899

PATIENT
  Age: 13 Year

DRUGS (1)
  1. ENBREL [Suspect]
     Active Substance: ETANERCEPT
     Indication: Rheumatoid arthritis
     Dosage: 50 MG, E10D
     Route: 058
     Dates: start: 20230419

REACTIONS (5)
  - Injection site pain [Unknown]
  - Injection site haemorrhage [Unknown]
  - Injection site pain [Unknown]
  - Off label use [Unknown]
  - Device failure [Unknown]

NARRATIVE: CASE EVENT DATE: 20230419
